FAERS Safety Report 10313700 (Version 5)
Quarter: 2018Q4

REPORT INFORMATION
  Report Type: Spontaneous
  Country: FR (occurrence: FR)
  Receive Date: 20140718
  Receipt Date: 20181226
  Transmission Date: 20190204
  Serious: Yes (Disabling)
  Sender: FDA-Public Use
  Company Number: FR-PFIZER INC-2014197717

PATIENT
  Age: 67 Year
  Sex: Male

DRUGS (11)
  1. AUGMENTIN [Concomitant]
     Active Substance: AMOXICILLIN\CLAVULANATE POTASSIUM
     Indication: NAUSEA
  2. AUGMENTIN [Concomitant]
     Active Substance: AMOXICILLIN\CLAVULANATE POTASSIUM
     Indication: INFECTION
     Dosage: UNK
     Dates: start: 201203, end: 201203
  3. METHYLPREDNISOLONE. [Concomitant]
     Active Substance: METHYLPREDNISOLONE
     Indication: PROPHYLAXIS
     Dosage: 60 MG, 1X/DAY CYCLIC EVERY 15 DAYS: 8 CYCLES, TOTAL ADMINISTERED DOSE: 900MG
     Route: 042
     Dates: start: 20110930, end: 20120420
  4. BLEOMYCINE BELLON [Suspect]
     Active Substance: BLEOMYCIN SULFATE
     Indication: HODGKIN^S DISEASE
     Dosage: 18.6 MG, CYCLIC (1X/DAY EVERY 15 DAYS; TOTAL DOSE ADMINISTERED: 239.4 MG)
     Route: 041
     Dates: start: 20110930, end: 20120420
  5. ZOPHREN [ONDANSETRON] [Concomitant]
     Active Substance: ONDANSETRON
     Indication: PROPHYLAXIS
     Dosage: 8 MG, 1X/DAY CYCLIC
     Route: 042
     Dates: start: 20110930, end: 20120420
  6. POLARAMINE [Concomitant]
     Active Substance: DEXCHLORPHENIRAMINE MALEATE
     Indication: PROPHYLAXIS
     Dosage: 5 MG, 1X/DAY CYCLIC EVERY 15 DAYS: DOSE: 75MG
     Route: 042
     Dates: start: 20110930, end: 20120420
  7. DOXORUBICIN HCL [Suspect]
     Active Substance: DOXORUBICIN HYDROCHLORIDE
     Indication: HODGKIN^S DISEASE
     Dosage: 46 MG, CYCLIC (1X/DAY EVERY 15 DAYS; TOTAL DOSE ADMINISTERED: 690 MG)
     Route: 041
     Dates: start: 20110930, end: 20120420
  8. VELBE [Suspect]
     Active Substance: VINBLASTINE SULFATE
     Indication: HODGKIN^S DISEASE
     Dosage: 10 MG, CYCLIC (1X/DAY EVERY 15 DAYS, DOSE: 150 MG)
     Route: 041
     Dates: start: 20110930, end: 20120420
  9. AUGMENTIN [Concomitant]
     Active Substance: AMOXICILLIN\CLAVULANATE POTASSIUM
     Indication: RHINITIS
  10. EMEND [Concomitant]
     Active Substance: APREPITANT
     Indication: PROPHYLAXIS
     Dosage: UNK
     Route: 042
     Dates: start: 20110930, end: 20120420
  11. DACARBAZINE. [Suspect]
     Active Substance: DACARBAZINE
     Indication: HODGKIN^S DISEASE
     Dosage: 690 MG, CYCLIC (1X/DAY EVERY 15 DAYS; TOTAL DOSE ADMINISTERED: 10350 MG)
     Route: 041
     Dates: start: 20110930, end: 20120420

REACTIONS (2)
  - Scleroderma [Not Recovered/Not Resolved]
  - Deafness bilateral [Not Recovered/Not Resolved]

NARRATIVE: CASE EVENT DATE: 2012
